FAERS Safety Report 22091608 (Version 1)
Quarter: 2023Q1

REPORT INFORMATION
  Report Type: Report from Study
  Country: US (occurrence: US)
  Receive Date: 20230314
  Receipt Date: 20230314
  Transmission Date: 20230417
  Serious: Yes (Hospitalization, Other)
  Sender: FDA-Public Use
  Company Number: US-ABBVIE-4313532

PATIENT
  Age: 16 Year
  Sex: Male

DRUGS (2)
  1. RINVOQ [Suspect]
     Active Substance: UPADACITINIB
     Indication: Eczema
     Dosage: FORM STRENGTH 15 MG
     Route: 048
     Dates: start: 202302, end: 202302
  2. RINVOQ [Suspect]
     Active Substance: UPADACITINIB
     Indication: Eczema
     Dosage: FORM STRENGTH 15 MG
     Route: 048
     Dates: start: 202302

REACTIONS (4)
  - Suicidal ideation [Unknown]
  - Eczema [Recovering/Resolving]
  - Skin haemorrhage [Recovering/Resolving]
  - Hormone level abnormal [Unknown]

NARRATIVE: CASE EVENT DATE: 20230201
